FAERS Safety Report 10439591 (Version 2)
Quarter: 2014Q3

REPORT INFORMATION
  Report Type: Spontaneous
  Country: US (occurrence: US)
  Receive Date: 20140908
  Receipt Date: 20140908
  Transmission Date: 20150326
  Serious: No
  Sender: FDA-Public Use
  Company Number: US-BRISTOL-MYERS SQUIBB COMPANY-19995372

PATIENT
  Age: 52 Year
  Sex: Female

DRUGS (25)
  1. PROVIGIL [Concomitant]
     Active Substance: MODAFINIL
     Indication: DEPRESSED LEVEL OF CONSCIOUSNESS
  2. OXYGEN. [Concomitant]
     Active Substance: OXYGEN
     Indication: POLYNEUROPATHY
  3. CELEBREX [Concomitant]
     Active Substance: CELECOXIB
     Indication: SCOLIOSIS
  4. ABILIFY [Suspect]
     Active Substance: ARIPIPRAZOLE
     Indication: DEPRESSION
  5. OXYCODONE [Concomitant]
     Active Substance: OXYCODONE
     Indication: PAIN
  6. DESIPRAMINE [Concomitant]
     Active Substance: DESIPRAMINE
     Indication: SLEEP DISORDER
  7. CELEBREX [Concomitant]
     Active Substance: CELECOXIB
     Indication: SPINAL OSTEOARTHRITIS
  8. LYRICA [Concomitant]
     Active Substance: PREGABALIN
     Indication: SCOLIOSIS
  9. LYRICA [Concomitant]
     Active Substance: PREGABALIN
     Indication: NEUROPATHY PERIPHERAL
  10. LYRICA [Concomitant]
     Active Substance: PREGABALIN
     Indication: CARPAL TUNNEL SYNDROME
  11. KLOR-CON [Concomitant]
     Active Substance: POTASSIUM CHLORIDE
     Indication: ELECTROLYTE IMBALANCE
  12. CLONAZEPAM. [Concomitant]
     Active Substance: CLONAZEPAM
  13. CELEBREX [Concomitant]
     Active Substance: CELECOXIB
     Indication: THYROID CANCER
  14. TRAZODONE HYDROCHLORIDE. [Concomitant]
     Active Substance: TRAZODONE HYDROCHLORIDE
     Indication: SLEEP DISORDER
  15. LYRICA [Concomitant]
     Active Substance: PREGABALIN
     Indication: THYROID CANCER
  16. CELEBREX [Concomitant]
     Active Substance: CELECOXIB
     Indication: NEUROPATHY PERIPHERAL
  17. CELEBREX [Concomitant]
     Active Substance: CELECOXIB
     Indication: OSTEOARTHRITIS
  18. PROPRANOLOL [Concomitant]
     Active Substance: PROPRANOLOL\PROPRANOLOL HYDROCHLORIDE
     Indication: BLOOD PRESSURE
  19. CELEBREX [Concomitant]
     Active Substance: CELECOXIB
     Indication: CARPAL TUNNEL SYNDROME
  20. ZANAFLEX [Concomitant]
     Active Substance: TIZANIDINE HYDROCHLORIDE
  21. TRAMADOL [Concomitant]
     Active Substance: TRAMADOL
     Indication: RESTLESS LEGS SYNDROME
  22. PRISTIQ EXTENDED RELEASE [Suspect]
     Active Substance: DESVENLAFAXINE SUCCINATE
     Indication: DEPRESSION
  23. SYNTHROID [Concomitant]
     Active Substance: LEVOTHYROXINE SODIUM
     Indication: THYROID DISORDER
  24. LYRICA [Concomitant]
     Active Substance: PREGABALIN
     Indication: SPINAL OSTEOARTHRITIS
  25. LYRICA [Concomitant]
     Active Substance: PREGABALIN
     Indication: OSTEOARTHRITIS

REACTIONS (3)
  - Tardive dyskinesia [Not Recovered/Not Resolved]
  - Mouth injury [Not Recovered/Not Resolved]
  - Muscle spasms [Not Recovered/Not Resolved]
